FAERS Safety Report 4642801-0 (Version None)
Quarter: 2005Q2

REPORT INFORMATION
  Report Type: 
  Country: None (occurrence: None)
  Receive Date: 20050420
  Receipt Date: 20050408
  Transmission Date: 20051028
  Serious: Yes (Other)
  Sender: FDA-Public Use
  Company Number: FR-2005-005176

PATIENT
  Age: 40 Year
  Sex: Female

DRUGS (1)
  1. MIRENA [Suspect]
     Dosage: 2 UG, CONT, INTRA-UTERINE
     Route: 015

REACTIONS (1)
  - BREAST CANCER IN SITU [None]
